FAERS Safety Report 4767595-X (Version None)
Quarter: 2005Q3

REPORT INFORMATION
  Report Type: 
  Country: None (occurrence: None)
  Receive Date: 20050913
  Receipt Date: 20050316
  Transmission Date: 20060218
  Serious: Yes (Hospitalization, Other)
  Sender: FDA-Public Use
  Company Number: US-MERCK-0503USA03211

PATIENT
  Age: 81 Year
  Sex: Male
  Weight: 84 kg

DRUGS (11)
  1. CARDIZEM CD [Concomitant]
     Indication: HYPERTENSION
     Route: 048
     Dates: start: 19960201, end: 19991101
  2. VIOXX [Suspect]
     Indication: OSTEOARTHRITIS
     Route: 048
     Dates: start: 19990701, end: 20040101
  3. VIOXX [Suspect]
     Indication: ARTHRITIS
     Route: 048
     Dates: start: 19990701, end: 20040101
  4. CARTIA XT [Concomitant]
     Indication: ANGINA PECTORIS
     Route: 048
     Dates: start: 20010401, end: 20040101
  5. CARTIA XT [Concomitant]
     Indication: HYPERTENSION
     Route: 048
     Dates: start: 20010401, end: 20040101
  6. DETROL LA [Concomitant]
     Route: 065
  7. FLOMAX [Concomitant]
     Indication: BENIGN PROSTATIC HYPERPLASIA
     Route: 065
  8. PROTONIX [Concomitant]
     Indication: GASTROOESOPHAGEAL REFLUX DISEASE
     Route: 065
  9. XENICAL [Concomitant]
     Indication: WEIGHT DECREASED
     Route: 065
  10. ZANTAC [Concomitant]
     Indication: DYSPEPSIA
     Route: 048
     Dates: start: 20010301
  11. ASPIRIN [Concomitant]
     Indication: PROPHYLAXIS
     Route: 048

REACTIONS (21)
  - ADJUSTMENT DISORDER WITH DEPRESSED MOOD [None]
  - ANAEMIA [None]
  - AORTIC VALVE INCOMPETENCE [None]
  - BLOOD CULTURE POSITIVE [None]
  - BURSITIS [None]
  - CARDIAC MURMUR [None]
  - CELLULITIS [None]
  - CEREBROVASCULAR ACCIDENT [None]
  - CHEST PAIN [None]
  - DIZZINESS [None]
  - GASTROINTESTINAL DISORDER [None]
  - HEARING IMPAIRED [None]
  - HYPERLIPIDAEMIA [None]
  - HYPOKALAEMIA [None]
  - HYPOPHOSPHATAEMIA [None]
  - MACULAR DEGENERATION [None]
  - MENTAL STATUS CHANGES [None]
  - OSTEOARTHRITIS [None]
  - TRANSIENT ISCHAEMIC ATTACK [None]
  - VENTRICULAR HYPERTROPHY [None]
  - VISUAL ACUITY REDUCED [None]
